FAERS Safety Report 11316454 (Version 1)
Quarter: 2015Q3

REPORT INFORMATION
  Report Type: Spontaneous
  Country: NL (occurrence: NL)
  Receive Date: 20150728
  Receipt Date: 20150728
  Transmission Date: 20151125
  Serious: Yes (Other)
  Sender: FDA-Public Use
  Company Number: NL-TEVA-580184ISR

PATIENT
  Age: 56 Year
  Sex: Male

DRUGS (7)
  1. CAPECITABINE TABLET FO 150MG [Concomitant]
     Active Substance: CAPECITABINE
     Route: 048
  2. CARBASALAATCALCIUM POEDER 100MG [Concomitant]
     Dosage: 100 MILLIGRAM DAILY; ONCE DAILY 100 MG. FORM OF ADMIN:ORAL POWDER
     Route: 048
  3. METAMUCIL SKVR LEMON POEDER 3,4G IN SACHET [Concomitant]
     Dosage: 1 DOSAGE FORMS DAILY; ONCE DAILY ONE. FORM OF ADMIN: ORAL POWDER
     Route: 048
  4. SIMVASTATINE TABLET 40MG [Concomitant]
     Dosage: 40 MILLIGRAM DAILY; ONCE DAILY ONE
     Route: 048
  5. SOTALOL TABLET  40MG [Concomitant]
     Active Substance: SOTALOL
     Dosage: 80 MILLIGRAM DAILY; TWICE DAILY ONE
     Route: 048
  6. OXALIPLATINE INFUSION [Suspect]
     Active Substance: OXALIPLATIN
     Indication: COLON CANCER
     Dosage: EXTRA INFO: 130 MG/M2 EVERY 3 WEEKS
     Route: 042
     Dates: start: 20150617, end: 20150618
  7. LOSARTAN/HYDROCHLOORTHIAZIDE TABLET 100/12,5MG [Concomitant]
     Dosage: 1 DOSAGE FORMS DAILY; ONCE DAILY ONE
     Route: 048

REACTIONS (15)
  - Fatigue [Recovered/Resolved]
  - Speech disorder [Recovered/Resolved]
  - Apathy [Recovered/Resolved]
  - Dizziness [Recovered/Resolved]
  - Dyskinesia [Recovered/Resolved]
  - Muscular weakness [None]
  - Dysstasia [None]
  - Feeling cold [None]
  - Asthenia [Recovered/Resolved]
  - Myalgia [Recovered/Resolved]
  - Dysphagia [Recovered/Resolved]
  - Somnolence [None]
  - Feeling abnormal [None]
  - Muscular weakness [Recovered/Resolved]
  - Asthenia [None]

NARRATIVE: CASE EVENT DATE: 20150617
